FAERS Safety Report 4750552-7 (Version None)
Quarter: 2005Q3

REPORT INFORMATION
  Report Type: 
  Country: None (occurrence: None)
  Receive Date: 20050823
  Receipt Date: 20050812
  Transmission Date: 20060218
  Serious: Yes (Other)
  Sender: FDA-Public Use
  Company Number: PHHO2005BR12845

PATIENT
  Age: 68 Year
  Sex: Female
  Weight: 54 kg

DRUGS (3)
  1. DIOVAN AMLO [Suspect]
     Indication: HYPERTENSION
     Dosage: 160/5MG QD
     Route: 048
     Dates: start: 20050101
  2. ATENOLOL [Concomitant]
  3. HIGROTON [Concomitant]

REACTIONS (7)
  - DYSPHONIA [None]
  - HEADACHE [None]
  - HOT FLUSH [None]
  - LARYNGEAL OEDEMA [None]
  - LOCALISED OEDEMA [None]
  - OEDEMA PERIPHERAL [None]
  - RESPIRATORY DISORDER [None]
